FAERS Safety Report 10910803 (Version 4)
Quarter: 2015Q2

REPORT INFORMATION
  Report Type: Spontaneous
  Country: US (occurrence: US)
  Receive Date: 20150312
  Receipt Date: 20150615
  Transmission Date: 20150821
  Serious: Yes (Hospitalization, Other)
  Sender: FDA-Public Use
  Company Number: US-009507513-1110USA03433

PATIENT
  Sex: Female
  Weight: 76.64 kg

DRUGS (1)
  1. FOSAMAX [Suspect]
     Active Substance: ALENDRONATE SODIUM
     Indication: BONE DENSITY DECREASED
     Dosage: UNK UNK, QD
     Route: 048
     Dates: start: 1998, end: 20060515

REACTIONS (37)
  - Hip arthroplasty [Unknown]
  - Rectal haemorrhage [Unknown]
  - Urinary incontinence [Unknown]
  - Osteolysis [Unknown]
  - Fall [Unknown]
  - Osteoarthritis [Unknown]
  - Bursitis [Unknown]
  - Arthritis [Unknown]
  - Adverse drug reaction [Unknown]
  - International normalised ratio increased [Unknown]
  - Hypothyroidism [Unknown]
  - Osteonecrosis [Unknown]
  - Haematoma [Unknown]
  - Biopsy [Unknown]
  - Protein C deficiency [Unknown]
  - Oesophageal rupture [Unknown]
  - Kyphosis [Unknown]
  - Spinal column stenosis [Unknown]
  - Open reduction of fracture [Unknown]
  - Internal fixation of fracture [Unknown]
  - Faeces discoloured [Unknown]
  - Anaemia [Unknown]
  - Osteoarthritis [Unknown]
  - Synovitis [Unknown]
  - Plasma cell myeloma [Unknown]
  - Arthropathy [Unknown]
  - Osteomyelitis [Unknown]
  - Scoliosis [Unknown]
  - Osteoporosis [Unknown]
  - Seroma [Recovering/Resolving]
  - Hip fracture [Unknown]
  - Dermatitis [Unknown]
  - Dermatitis allergic [Unknown]
  - Femur fracture [Unknown]
  - Actinomycotic skin infection [Unknown]
  - Intervertebral disc degeneration [Unknown]
  - Osteoarthritis [Unknown]

NARRATIVE: CASE EVENT DATE: 20060515
